FAERS Safety Report 4489838-2 (Version None)
Quarter: 2004Q4

REPORT INFORMATION
  Report Type: 
  Country: None (occurrence: None)
  Receive Date: 20041101
  Receipt Date: 20041026
  Transmission Date: 20050328
  Serious: Yes (Life-Threatening, Hospitalization)
  Sender: FDA-Public Use
  Company Number: US-MERCK-0410USA03840

PATIENT
  Age: 38 Year
  Sex: Male

DRUGS (4)
  1. VIOXX [Suspect]
     Indication: PAIN MANAGEMENT
     Route: 048
     Dates: start: 20011020, end: 20040101
  2. LORTAB [Concomitant]
     Route: 065
  3. SKELAXIN [Concomitant]
     Route: 065
  4. TIZANIDINE HYDROCHLORIDE [Concomitant]
     Route: 065

REACTIONS (2)
  - CHEST PAIN [None]
  - MYOCARDIAL INFARCTION [None]
